FAERS Safety Report 5933702-6 (Version None)
Quarter: 2008Q4

REPORT INFORMATION
  Report Type: 
  Country: None (occurrence: None)
  Receive Date: 20081029
  Receipt Date: 20081023
  Transmission Date: 20090506
  Serious: Yes (Hospitalization)
  Sender: FDA-Public Use
  Company Number: US-BRISTOL-MYERS SQUIBB COMPANY-14381644

PATIENT
  Age: 7 Year
  Sex: Male

DRUGS (2)
  1. ABILIFY [Suspect]
     Dosage: 3-4 YEARS AGO
  2. ADDERALL 10 [Concomitant]

REACTIONS (1)
  - PSYCHOTIC DISORDER [None]
